FAERS Safety Report 16758148 (Version 1)
Quarter: 2019Q3

REPORT INFORMATION
  Report Type: Spontaneous
  Country: IT (occurrence: IT)
  Receive Date: 20190830
  Receipt Date: 20190830
  Transmission Date: 20191005
  Serious: Yes (Other)
  Sender: FDA-Public Use
  Company Number: IT-AUROBINDO-AUR-APL-2019-057001

PATIENT

DRUGS (2)
  1. PARACETAMOL [Suspect]
     Active Substance: ACETAMINOPHEN
     Indication: PAIN
     Dosage: 1 DOSAGE FORM, IN TOTAL
     Route: 048
     Dates: start: 20190607, end: 20190607
  2. VISIPAQUE [Suspect]
     Active Substance: IODIXANOL
     Indication: INVESTIGATION
     Dosage: 80 MILLILITER, IN TOTAL
     Route: 042
     Dates: start: 20190607, end: 20190607

REACTIONS (3)
  - Rash [Recovering/Resolving]
  - Angioedema [Recovering/Resolving]
  - Rash pruritic [Recovering/Resolving]

NARRATIVE: CASE EVENT DATE: 20190607
